FAERS Safety Report 6878759-3 (Version None)
Quarter: 2010Q3

REPORT INFORMATION
  Report Type: 
  Country: None (occurrence: None)
  Receive Date: 20100728
  Receipt Date: 20100716
  Transmission Date: 20110219
  Serious: Yes (Hospitalization)
  Sender: FDA-Public Use
  Company Number: US-BAYER-201022324NA

PATIENT
  Age: 64 Year
  Sex: Female

DRUGS (6)
  1. BETASERON [Suspect]
     Indication: RELAPSING-REMITTING MULTIPLE SCLEROSIS
     Route: 058
     Dates: start: 20020725, end: 20021202
  2. BETASERON [Suspect]
     Dosage: TOTAL DAILY DOSE: 4 MIU
     Route: 058
     Dates: start: 20100418
  3. BETASERON [Suspect]
     Dosage: TOTAL DAILY DOSE: 8 MIU
     Route: 058
  4. COUMADIN [Suspect]
  5. INSULIN [Concomitant]
     Indication: DIABETES MELLITUS
  6. BLOOD TRANSFUSION [Concomitant]
     Indication: BLOOD COUNT ABNORMAL

REACTIONS (13)
  - BLOOD COUNT ABNORMAL [None]
  - BLOOD PRESSURE FLUCTUATION [None]
  - CARDIAC PACEMAKER INSERTION [None]
  - DIARRHOEA [None]
  - DIZZINESS [None]
  - FEELING ABNORMAL [None]
  - GAIT DISTURBANCE [None]
  - HYPERHIDROSIS [None]
  - INJECTION SITE PAIN [None]
  - MOBILITY DECREASED [None]
  - NAUSEA [None]
  - PNEUMONIA [None]
  - VOMITING [None]
